FAERS Safety Report 11163016 (Version 1)
Quarter: 2015Q2

REPORT INFORMATION
  Report Type: Spontaneous
  Country: US (occurrence: US)
  Receive Date: 20150604
  Receipt Date: 20150604
  Transmission Date: 20150821
  Serious: Yes (Hospitalization)
  Sender: FDA-Public Use
  Company Number: US-MYLANLABS-2015M1018341

PATIENT

DRUGS (1)
  1. IBUPROFEN. [Suspect]
     Active Substance: IBUPROFEN
     Indication: HEADACHE
     Dosage: 14-56 TABLETS OF 800MG WEEKLY
     Route: 065

REACTIONS (2)
  - Hyperammonaemia [Recovering/Resolving]
  - Renal tubular acidosis [Recovered/Resolved]
